FAERS Safety Report 7649969-2 (Version None)
Quarter: 2011Q3

REPORT INFORMATION
  Report Type: 
  Country: None (occurrence: None)
  Receive Date: 20110802
  Receipt Date: 20110727
  Transmission Date: 20111222
  Serious: No
  Sender: FDA-Public Use
  Company Number: US-BRISTOL-MYERS SQUIBB COMPANY-15908973

PATIENT
  Age: 30 Year
  Sex: Female

DRUGS (4)
  1. ABILIFY [Suspect]
     Indication: POST-TRAUMATIC STRESS DISORDER
     Dosage: DOSCARDING DATE:19JUL12
     Dates: start: 20101001
  2. ARTANE [Concomitant]
  3. ABILIFY [Suspect]
     Indication: SCHIZOAFFECTIVE DISORDER
     Dosage: DOSCARDING DATE:19JUL12
     Dates: start: 20101001
  4. HALDOL [Concomitant]

REACTIONS (1)
  - NO ADVERSE EVENT [None]
